FAERS Safety Report 4852141-2 (Version None)
Quarter: 2005Q4

REPORT INFORMATION
  Report Type: 
  Country: None (occurrence: None)
  Receive Date: 20051213
  Receipt Date: 20051212
  Transmission Date: 20060501
  Serious: Yes (Death, Life-Threatening)
  Sender: FDA-Public Use
  Company Number: 2005CG02058

PATIENT
  Age: 71 Year
  Sex: Female

DRUGS (3)
  1. MOPRAL [Suspect]
     Route: 048
  2. LASILIX [Suspect]
     Route: 048
     Dates: start: 20050812, end: 20050831
  3. TRIFLUCAN [Suspect]

REACTIONS (2)
  - NEUTROPENIA [None]
  - PANCYTOPENIA [None]
